FAERS Safety Report 10034692 (Version 1)
Quarter: 2014Q1

REPORT INFORMATION
  Report Type: Not Available
  Country: NL (occurrence: NL)
  Receive Date: 20140325
  Receipt Date: 20140325
  Transmission Date: 20141002
  Serious: Yes (Death)
  Sender: FDA-Public Use
  Company Number: NL-ASTELLAS-2014EU002557

PATIENT
  Age: 55 Year
  Sex: Male
  Weight: 78 kg

DRUGS (2)
  1. TACROLIMUS SYSTEMIC [Suspect]
     Indication: IMMUNOSUPPRESSION
     Dosage: 1 MG, BID
     Route: 065
     Dates: start: 20120529
  2. CELLCEPT /01275102/ [Interacting]
     Indication: IMMUNOSUPPRESSION
     Dosage: 250 MG, BID
     Route: 065
     Dates: start: 20120529

REACTIONS (1)
  - Cardiac arrest [Fatal]
